FAERS Safety Report 9139427 (Version 2)
Quarter: 2013Q2

REPORT INFORMATION
  Report Type: Report from Study
  Country: HU (occurrence: HU)
  Receive Date: 20130305
  Receipt Date: 20130417
  Transmission Date: 20140414
  Serious: Yes (Death)
  Sender: FDA-Public Use
  Company Number: PHHY2013HU021206

PATIENT
  Age: 81 Year
  Sex: Female
  Weight: 60 kg

DRUGS (3)
  1. FEMARA [Suspect]
     Indication: BREAST CANCER IN SITU
     Dosage: 2.5MG QD
     Route: 048
     Dates: start: 200401
  2. CAVINTON [Concomitant]
     Dosage: UNK UKN, UNK
  3. TRITACE [Concomitant]
     Dosage: UNK UKN, UNK

REACTIONS (1)
  - Cardiopulmonary failure [Fatal]
